FAERS Safety Report 7381797-8 (Version None)
Quarter: 2011Q1

REPORT INFORMATION
  Report Type: 
  Country: None (occurrence: None)
  Receive Date: 20110329
  Receipt Date: 20110324
  Transmission Date: 20110831
  Serious: Yes (Death, Life-Threatening)
  Sender: FDA-Public Use
  Company Number: DE-TEVA-273191GER

PATIENT
  Sex: Female

DRUGS (1)
  1. COTRIM [Suspect]
     Indication: URINARY TRACT INFECTION
     Dosage: 800 MG SULFAMETHOXAZOLE/ 160 MG TRIMETHOPRIM
     Route: 048
     Dates: start: 20101220, end: 20101226

REACTIONS (2)
  - HEPATIC FAILURE [None]
  - RENAL FAILURE [None]
